FAERS Safety Report 8845007 (Version 3)
Quarter: 2013Q2

REPORT INFORMATION
  Report Type: Spontaneous
  Country: US (occurrence: US)
  Receive Date: 20121017
  Receipt Date: 20130430
  Transmission Date: 20140414
  Serious: Yes (Other)
  Sender: FDA-Public Use
  Company Number: US-ASTRAZENECA-2012SE77563

PATIENT
  Age: 66 Year
  Sex: Female
  Weight: 87.1 kg

DRUGS (6)
  1. SEROQUEL [Suspect]
     Indication: PARANOIA
     Route: 048
     Dates: end: 2006
  2. SEROQUEL [Suspect]
     Indication: SCHIZOPHRENIA
     Route: 048
     Dates: end: 2006
  3. SEROQUEL [Suspect]
     Indication: PARANOIA
     Route: 048
     Dates: start: 2007, end: 201212
  4. SEROQUEL [Suspect]
     Indication: SCHIZOPHRENIA
     Route: 048
     Dates: start: 2007, end: 201212
  5. SEROQUEL [Suspect]
     Indication: PARANOIA
     Dosage: 300 MILLIGRAMS IN THE MORNING AND 400 MILLIGRAMS IN THE EVENING
     Route: 048
     Dates: start: 201212
  6. SEROQUEL [Suspect]
     Indication: SCHIZOPHRENIA
     Dosage: 300 MILLIGRAMS IN THE MORNING AND 400 MILLIGRAMS IN THE EVENING
     Route: 048
     Dates: start: 201212

REACTIONS (8)
  - Upper limb fracture [Unknown]
  - Balance disorder [Unknown]
  - Fall [Unknown]
  - Cerebrovascular accident [Unknown]
  - Bipolar disorder [Unknown]
  - Affect lability [Unknown]
  - Body height decreased [Unknown]
  - Drug dose omission [Unknown]
